FAERS Safety Report 9472468 (Version 4)
Quarter: 2014Q1

REPORT INFORMATION
  Report Type: Report from Study
  Country: CA (occurrence: CA)
  Receive Date: 20130823
  Receipt Date: 20140225
  Transmission Date: 20141002
  Serious: Yes (Death, Hospitalization, Other)
  Sender: FDA-Public Use
  Company Number: PHHY2013CA032040

PATIENT
  Age: 67 Year
  Sex: Male

DRUGS (10)
  1. SANDOSTATIN LAR [Suspect]
     Indication: NEUROENDOCRINE TUMOUR
     Dosage: 30 MG, QMO
     Route: 030
     Dates: start: 20110511
  2. SANDOSTATIN LAR [Suspect]
     Dosage: 30 MG, EVERY 4 WEEKS
     Route: 030
  3. SANDOSTATIN LAR [Suspect]
     Dosage: 30 MG, QMO
     Route: 030
  4. SANDOSTATIN LAR [Suspect]
     Dosage: 30 MG, EVERY 4 WEEKS
     Route: 030
  5. SANDOSTATIN LAR [Suspect]
     Dosage: 20 MG, EVERY 4 WEEKS
     Route: 030
  6. SANDOSTATIN LAR [Suspect]
     Dosage: 30 MG, EVERY 4 WEEKS
     Route: 030
     Dates: end: 20140130
  7. AFINITOR [Suspect]
     Indication: NEUROENDOCRINE TUMOUR
     Dosage: 10 MG, QD
     Route: 048
     Dates: start: 20120526
  8. AFINITOR [Suspect]
     Dosage: 10 MG, ONCE DAILY
     Route: 048
     Dates: end: 20140216
  9. DECADRON [Suspect]
     Dosage: UNK UKN, UNK
     Dates: start: 201308
  10. EPREX [Concomitant]
     Dosage: UNK UKN, UNK

REACTIONS (7)
  - Death [Fatal]
  - Coma [Unknown]
  - Neoplasm recurrence [Unknown]
  - Road traffic accident [Unknown]
  - Anaemia [Unknown]
  - Hypoglycaemia [Unknown]
  - Blood glucose increased [Unknown]
